FAERS Safety Report 13307372 (Version 2)
Quarter: 2017Q2

REPORT INFORMATION
  Report Type: Spontaneous
  Country: JP (occurrence: JP)
  Receive Date: 20170308
  Receipt Date: 20170607
  Transmission Date: 20170830
  Serious: Yes (Hospitalization)
  Sender: FDA-Public Use
  Company Number: JP-ASTRAZENECA-2016SF07096

PATIENT
  Age: 28607 Day
  Sex: Male
  Weight: 64 kg

DRUGS (20)
  1. ALIMTA [Suspect]
     Active Substance: PEMETREXED DISODIUM
     Indication: LUNG ADENOCARCINOMA
     Dosage: 860 MG, EVERY THREE WEEKS, 500 MG/M2
     Route: 042
     Dates: start: 20160707
  2. EQUMET [Concomitant]
     Active Substance: METFORMIN HYDROCHLORIDE\VILDAGLIPTIN
     Indication: TYPE 2 DIABETES MELLITUS
     Dosage: HIGH DOSE, AFTER BREAKFAST AND EVENING MEAL
     Route: 048
  3. CALONAL [Concomitant]
     Active Substance: ACETAMINOPHEN
     Dosage: 300 MG, THREE TIMES A DAY AFTER BREAKFAST, LUNCH AND EVENING MEAL
     Route: 048
  4. METGLUCO [Concomitant]
     Active Substance: METFORMIN HYDROCHLORIDE
  5. AVASTIN [Concomitant]
     Active Substance: BEVACIZUMAB
     Indication: LUNG ADENOCARCINOMA
     Dosage: 960 MG, EVERY THREE WEEKS, 15 MG/KG
     Route: 042
     Dates: start: 20160707
  6. AMLODIN OD [Concomitant]
     Active Substance: AMLODIPINE BESYLATE
     Indication: HYPERTENSION
     Dosage: 5 MG, EVERY DAY AFTER BREAKFAST
     Route: 048
  7. LENDORMIN D [Concomitant]
     Active Substance: BROTIZOLAM
     Indication: INSOMNIA
     Dosage: 0.25 MG, EVERY DAY BEFORE BEDTIME
     Route: 048
  8. CLARITH [Concomitant]
     Active Substance: CLARITHROMYCIN
     Dosage: DOSE UNKNOWN
     Route: 048
  9. CARBOPLATIN. [Suspect]
     Active Substance: CARBOPLATIN
     Indication: LUNG ADENOCARCINOMA
     Dosage: 470 MG, EVERY THREE WEEKS, AUC=5
     Route: 042
     Dates: start: 20160707, end: 20160927
  10. MAGMITT [Concomitant]
     Active Substance: MAGNESIUM OXIDE
     Dosage: 330 MG, THREE TIMES A DAY, AFTER BREAKFAST, LUNCH AND EVENING MEAL
     Route: 048
  11. AMARYL [Concomitant]
     Active Substance: GLIMEPIRIDE
     Indication: TYPE 2 DIABETES MELLITUS
     Dosage: 1 MG, EVERY DAY AFTER BREAKFAST
     Route: 048
  12. PANVITAN [Concomitant]
     Indication: LUNG ADENOCARCINOMA
     Dosage: 1 G, EVERY DAY AFTER BREAKFAST
     Route: 048
     Dates: start: 20160705
  13. PRIMPERAN [Concomitant]
     Active Substance: METOCLOPRAMIDE HYDROCHLORIDE
     Dosage: AS REQUIRED
     Route: 048
  14. SENNOSIDE [Concomitant]
     Active Substance: SENNOSIDES
     Dosage: AS REQUIRED
     Route: 048
  15. FORXIGA [Suspect]
     Active Substance: DAPAGLIFLOZIN
     Indication: TYPE 2 DIABETES MELLITUS
     Dosage: 5 MG, EVERY DAY AFTER BREAKFAST
     Route: 048
     Dates: start: 20160729, end: 20160818
  16. MAINTATE [Concomitant]
     Active Substance: BISOPROLOL FUMARATE
     Indication: HYPERTENSION
     Dosage: 2.5 MG, EVERY DAY AFTER BREAKFAST
     Route: 048
  17. EPADEL S [Concomitant]
     Active Substance: ICOSAPENT ETHYL
     Route: 065
  18. TRANSAMIN [Concomitant]
     Active Substance: TRANEXAMIC ACID
     Dosage: 250 MG, THREE TIMES A DAY AFTER BREAKFAST, LUNCH AND EVENING MEAL
     Route: 048
  19. SUGLAT [Concomitant]
     Active Substance: IPRAGLIFLOZIN L-PROLINE
     Indication: TYPE 2 DIABETES MELLITUS
     Dosage: DOSE UNKNOWN
     Route: 048
  20. MUCODYNE [Concomitant]
     Active Substance: CARBOCYSTEINE
     Dosage: DOSE UNKNOWN
     Route: 048

REACTIONS (2)
  - Urinary tract infection [Recovered/Resolved]
  - Escherichia sepsis [Recovered/Resolved]

NARRATIVE: CASE EVENT DATE: 20160802
